FAERS Safety Report 21541459 (Version 1)
Quarter: 2022Q4

REPORT INFORMATION
  Report Type: Spontaneous
  Country: CN (occurrence: CN)
  Receive Date: 20221102
  Receipt Date: 20221102
  Transmission Date: 20230113
  Serious: Yes (Other)
  Sender: FDA-Public Use
  Company Number: CN-PFIZER INC-PV202200092922

PATIENT
  Age: 57 Year
  Sex: Female
  Weight: 74 kg

DRUGS (2)
  1. IBRANCE [Suspect]
     Active Substance: PALBOCICLIB
     Indication: Therapeutic procedure
     Dosage: 125 MG, 1X/DAY
     Route: 048
     Dates: start: 20220923, end: 20221013
  2. LETROZOLE [Suspect]
     Active Substance: LETROZOLE
     Indication: Therapeutic procedure
     Dosage: 0.5 MG, 1X/DAY
     Route: 048
     Dates: start: 20220923, end: 20221017

REACTIONS (1)
  - Myelosuppression [Recovering/Resolving]

NARRATIVE: CASE EVENT DATE: 20221017
